FAERS Safety Report 6529156-1 (Version None)
Quarter: 2010Q1

REPORT INFORMATION
  Report Type: 
  Country: None (occurrence: None)
  Receive Date: 20100107
  Receipt Date: 20091228
  Transmission Date: 20100710
  Serious: Yes (Other)
  Sender: FDA-Public Use
  Company Number: US-TEVA-219206USA

PATIENT
  Age: 61 Year

DRUGS (1)
  1. WARFARIN SODIUM [Suspect]
     Route: 048

REACTIONS (1)
  - RENAL TUBULAR NECROSIS [None]
